FAERS Safety Report 19587051 (Version 1)
Quarter: 2021Q3

REPORT INFORMATION
  Report Type: Spontaneous
  Country: US (occurrence: US)
  Receive Date: 20210720
  Receipt Date: 20210720
  Transmission Date: 20211014
  Serious: No
  Sender: FDA-Public Use
  Company Number: None

PATIENT
  Age: 61 Year
  Sex: Male
  Weight: 84.37 kg

DRUGS (2)
  1. METFORMIN (METFORMIN HCL 500MG 24HR TAB,SA) [Suspect]
     Active Substance: METFORMIN HYDROCHLORIDE
     Indication: PAIN
     Route: 048
     Dates: start: 20180226
  2. METFORMIN (METFORMIN HCL 500MG 24HR TAB,SA) [Suspect]
     Active Substance: METFORMIN HYDROCHLORIDE
     Indication: DIABETES MELLITUS
     Route: 048
     Dates: start: 20190101, end: 20190130

REACTIONS (3)
  - Abdominal discomfort [None]
  - Gastrointestinal tract irritation [None]
  - Gastrointestinal pain [None]

NARRATIVE: CASE EVENT DATE: 20190101
